FAERS Safety Report 5742331-9 (Version None)
Quarter: 2008Q2

REPORT INFORMATION
  Report Type: 
  Country: None (occurrence: None)
  Receive Date: 20080514
  Receipt Date: 20070629
  Transmission Date: 20081010
  Serious: Yes (Life-Threatening, Hospitalization, Disabling)
  Sender: FDA-Public Use
  Company Number: US200707001111

PATIENT
  Age: 12 Year
  Sex: Male

DRUGS (4)
  1. KEFLEX [Suspect]
     Indication: ENCEPHALITIS VIRAL
     Dates: start: 20060501
  2. LAMICTAL [Concomitant]
  3. KEPPRA [Concomitant]
  4. TRILEPTAL [Concomitant]

REACTIONS (1)
  - TOXIC EPIDERMAL NECROLYSIS [None]
